FAERS Safety Report 7053769-4 (Version None)
Quarter: 2010Q4

REPORT INFORMATION
  Report Type: 
  Country: None (occurrence: None)
  Receive Date: 20101020
  Receipt Date: 20101014
  Transmission Date: 20110411
  Serious: Yes (Death, Hospitalization)
  Sender: FDA-Public Use
  Company Number: A0887645A

PATIENT
  Sex: Male
  Weight: 50 kg

DRUGS (1)
  1. SERETIDE [Suspect]
     Indication: LUNG DISORDER
     Dosage: 1PUFF TWICE PER DAY
     Route: 055
     Dates: start: 20100924, end: 20100926

REACTIONS (2)
  - DEATH [None]
  - LUNG DISORDER [None]
